FAERS Safety Report 6634554-1 (Version None)
Quarter: 2010Q1

REPORT INFORMATION
  Report Type: 
  Country: None (occurrence: None)
  Receive Date: 20100315
  Receipt Date: 20100311
  Transmission Date: 20100710
  Serious: Yes (Death)
  Sender: FDA-Public Use
  Company Number: GB-ELI_LILLY_AND_COMPANY-GB201001006170

PATIENT
  Sex: Female
  Weight: 68 kg

DRUGS (10)
  1. SOMATROPIN [Suspect]
     Indication: GROWTH HORMONE DEFICIENCY
     Dosage: 0.7 MG, DAILY (1/D)
     Route: 058
     Dates: start: 19971124
  2. LEVOTHYROXINE SODIUM [Concomitant]
     Indication: HYPOPITUITARISM
     Dates: start: 19951101
  3. HYDROCORTISONE [Concomitant]
     Indication: HYPOPITUITARISM
     Dates: start: 19760101
  4. FLUDROCORTISONE [Concomitant]
     Indication: HYPOPITUITARISM
     Dates: start: 19760101
  5. DDAVP [Concomitant]
     Indication: HYPOPITUITARISM
     Dates: start: 19980101
  6. METFORMIN HCL [Concomitant]
     Indication: DIABETES MELLITUS
     Dates: start: 20050101
  7. GLIMEPIRIDE [Concomitant]
     Indication: DIABETES MELLITUS
     Dates: start: 20000101
  8. ATORVASTATIN CALCIUM [Concomitant]
     Indication: HYPERLIPIDAEMIA
     Dates: start: 20040101
  9. CLOPIDOGREL [Concomitant]
     Indication: ANTICOAGULANT THERAPY
     Dates: start: 20030101
  10. LOSEC [Concomitant]
     Indication: GASTRITIS PROPHYLAXIS
     Dates: start: 19980101

REACTIONS (1)
  - DEATH [None]
